FAERS Safety Report 23296825 (Version 2)
Quarter: 2023Q4

REPORT INFORMATION
  Report Type: Report from Study
  Country: JP (occurrence: JP)
  Receive Date: 20231214
  Receipt Date: 20231228
  Transmission Date: 20240110
  Serious: Yes (Hospitalization, Other)
  Sender: FDA-Public Use
  Company Number: JP-INSMED-2023-02623-JPAA

PATIENT
  Age: 65 Year
  Sex: Female

DRUGS (2)
  1. ARIKAYCE [Suspect]
     Active Substance: AMIKACIN
     Indication: Mycobacterium avium complex infection
     Dosage: UNK
     Route: 055
     Dates: start: 20210921, end: 2023
  2. ARIKAYCE [Suspect]
     Active Substance: AMIKACIN
     Dosage: UNK
     Route: 055
     Dates: start: 20231102

REACTIONS (6)
  - Pneumonia bacterial [Unknown]
  - Mycobacterium avium complex infection [Unknown]
  - Therapy interrupted [Unknown]
  - Incorrect product administration duration [Unknown]
  - Device issue [Unknown]
  - Drug ineffective [Unknown]
